FAERS Safety Report 5375845-4 (Version None)
Quarter: 2007Q3

REPORT INFORMATION
  Report Type: 
  Country: None (occurrence: None)
  Receive Date: 20070702
  Receipt Date: 20070621
  Transmission Date: 20080115
  Serious: Yes (Other)
  Sender: FDA-Public Use
  Company Number: PHNR2007AU01286

PATIENT
  Sex: Male

DRUGS (1)
  1. CLOZARIL [Suspect]
     Indication: SCHIZOPHRENIA
     Dosage: 75-450MG DAILY
     Route: 048
     Dates: start: 20061207

REACTIONS (2)
  - CHOKING [None]
  - SALIVARY HYPERSECRETION [None]
